FAERS Safety Report 6145504-9 (Version None)
Quarter: 2009Q2

REPORT INFORMATION
  Report Type: 
  Country: None (occurrence: None)
  Receive Date: 20090402
  Receipt Date: 20090317
  Transmission Date: 20091009
  Serious: Yes (Other)
  Sender: FDA-Public Use
  Company Number: 2009S1004866

PATIENT
  Age: 45 Year
  Sex: Female

DRUGS (5)
  1. CLARITHROMYCIN [Suspect]
     Indication: HELICOBACTER INFECTION
     Dosage: 250 MG; TWICE A DAY ORAL
     Route: 048
     Dates: start: 20090216
  2. CHANTIX [Suspect]
     Indication: SMOKING CESSATION THERAPY
     Dosage: 1 MG; TWICE A DAY ORAL
     Route: 048
     Dates: start: 20090201
  3. METRONIDAZOLE [Concomitant]
  4. OMEPRAZOLE [Concomitant]
  5. PREMARIN [Concomitant]

REACTIONS (5)
  - GLOSSITIS [None]
  - ORAL CANDIDIASIS [None]
  - ORAL HERPES [None]
  - STOMATITIS [None]
  - TONGUE DISORDER [None]
